FAERS Safety Report 19987882 (Version 1)
Quarter: 2021Q4

REPORT INFORMATION
  Report Type: Spontaneous
  Country: US (occurrence: US)
  Receive Date: 20211023
  Receipt Date: 20211023
  Transmission Date: 20220303
  Serious: No
  Sender: FDA-Public Use
  Company Number: None

PATIENT
  Age: 68 Year
  Sex: Female

DRUGS (3)
  1. DONEPEZIL [Suspect]
     Active Substance: DONEPEZIL
     Indication: Vascular dementia
     Dosage: 5 MILLIGRAM, QD (AT BEDTIME)
     Route: 065
  2. BUPROPION [Concomitant]
     Active Substance: BUPROPION
     Indication: Depression
     Dosage: 75 MILLIGRAM, QD (EVERY MORNING)
     Route: 065
  3. BUPROPION [Concomitant]
     Active Substance: BUPROPION
     Dosage: 150 MILLIGRAM, QD (EVERY MORNING)
     Route: 065

REACTIONS (1)
  - Sexually inappropriate behaviour [Recovered/Resolved]
